FAERS Safety Report 21177821 (Version 1)
Quarter: 2022Q3

REPORT INFORMATION
  Report Type: Other
  Country: CN (occurrence: CN)
  Receive Date: 20220805
  Receipt Date: 20220805
  Transmission Date: 20221027
  Serious: Yes (Life-Threatening, Hospitalization)
  Sender: FDA-Public Use
  Company Number: CN-GE HEALTHCARE-2022CSU005241

PATIENT
  Age: 34 Year
  Sex: Male
  Weight: 55 kg

DRUGS (2)
  1. OMNIPAQUE [Suspect]
     Active Substance: IOHEXOL
     Indication: Computerised tomogram
     Dosage: 70 ML, SINGLE
     Route: 042
     Dates: start: 20220620, end: 20220620
  2. OMNIPAQUE [Suspect]
     Active Substance: IOHEXOL
     Indication: Mediastinum neoplasm

REACTIONS (7)
  - Urinary incontinence [Unknown]
  - Pallor [Unknown]
  - Shock [Unknown]
  - Unresponsive to stimuli [Unknown]
  - Pulse absent [Unknown]
  - Dyspnoea [Unknown]
  - Depressed level of consciousness [Unknown]

NARRATIVE: CASE EVENT DATE: 20220620
